FAERS Safety Report 7808740-9 (Version None)
Quarter: 2011Q4

REPORT INFORMATION
  Report Type: 
  Country: None (occurrence: None)
  Receive Date: 20111007
  Receipt Date: 20110923
  Transmission Date: 20120403
  Serious: Yes (Hospitalization)
  Sender: FDA-Public Use
  Company Number: 2011SGN00215

PATIENT
  Age: 57 Year
  Sex: Male
  Weight: 80.6 kg

DRUGS (11)
  1. NAPROSYN [Concomitant]
  2. CENTRUM (ASCORBIC ACID, BETACAROTENE, COLECALCIFEROL, FOLIC ACID, MINE [Concomitant]
  3. ALLOPURINOL [Concomitant]
  4. LOSARTAN POTASSIUM [Concomitant]
  5. SALBUTAMOL (SALBUTAMOL SULFATE) [Concomitant]
  6. SENOKOT (SENNA ALEXANDRINA FRUIT) [Concomitant]
  7. NEXIUM [Concomitant]
  8. NEXIUM [Concomitant]
  9. TRAMADOL HCL [Concomitant]
  10. BRENTUXIMAB VEDOTIN (BRENTUXIMAB VEDOTIN) INJECTION [Suspect]
     Indication: LYMPHOMA
     Dosage: 1.8 MG/KG, Q21D, INTRAVENOUS
     Route: 042
     Dates: start: 20110815, end: 20110909
  11. LYRICA [Concomitant]

REACTIONS (7)
  - PANCREATITIS [None]
  - BLOOD LACTIC ACID INCREASED [None]
  - SYSTEMIC INFLAMMATORY RESPONSE SYNDROME [None]
  - SINUS TACHYCARDIA [None]
  - HYPERCALCAEMIA [None]
  - PNEUMONIA [None]
  - LEUKOCYTOSIS [None]
